FAERS Safety Report 10024006 (Version 4)
Quarter: 2014Q2

REPORT INFORMATION
  Report Type: Spontaneous
  Country: JP (occurrence: JP)
  Receive Date: 20140320
  Receipt Date: 20140425
  Transmission Date: 20141212
  Serious: Yes (Other)
  Sender: FDA-Public Use
  Company Number: JP-ASTRAZENECA-2014SE07132

PATIENT
  Age: 58 Year
  Sex: Male
  Weight: 78 kg

DRUGS (7)
  1. XYLOCAINE [Suspect]
     Indication: NERVE BLOCK
     Dosage: ADMINISTERED THREE TIMES, DOSE UNKNOWN
     Route: 053
     Dates: start: 20140128, end: 20140128
  2. ANAPEINE [Suspect]
     Indication: NERVE BLOCK
     Dosage: ADMINISTERED THREE TIMES, DOSE UNKNOWN
     Route: 053
     Dates: start: 20140128, end: 20140128
  3. BRUFEN [Suspect]
     Indication: HEADACHE
     Route: 048
     Dates: start: 20140120
  4. FERROMIA [Suspect]
     Indication: MINERAL SUPPLEMENTATION
     Route: 048
     Dates: start: 20140120, end: 20140127
  5. TAKEPRON [Suspect]
     Indication: PROPHYLAXIS AGAINST GASTROINTESTINAL ULCER
     Route: 048
     Dates: start: 20140127
  6. PRECEDEX [Concomitant]
     Dosage: USUAL DOSE
     Route: 065
     Dates: start: 20140128
  7. ULTIVA [Concomitant]
     Route: 065
     Dates: start: 20140128

REACTIONS (2)
  - Toxicity to various agents [Recovered/Resolved]
  - Convulsion [Recovered/Resolved]
